FAERS Safety Report 6813229-X (Version None)
Quarter: 2010Q3

REPORT INFORMATION
  Report Type: 
  Country: None (occurrence: None)
  Receive Date: 20100701
  Receipt Date: 20100621
  Transmission Date: 20110219
  Serious: Yes (Hospitalization, Disabling)
  Sender: FDA-Public Use
  Company Number: JP-PFIZER INC-2010077196

PATIENT
  Age: 62 Year
  Sex: Male
  Weight: 57 kg

DRUGS (8)
  1. SUNITINIB MALATE [Suspect]
     Indication: GASTROINTESTINAL STROMAL TUMOUR
     Dosage: 50 MG, 1X/DAY
     Dates: start: 20091001
  2. SUNITINIB MALATE [Suspect]
     Dosage: UNK
  3. SUNITINIB MALATE [Suspect]
     Dosage: UNK
  4. DIOVAN [Concomitant]
     Dosage: 80 MG, 1X/DAY
     Route: 048
     Dates: start: 20090929
  5. NOVAMIN [Concomitant]
     Dosage: 5 MG, 1X/DAY
     Route: 048
     Dates: start: 20091004
  6. FAMOTIDINE [Concomitant]
     Dosage: 20 MG, 1X/DAY
     Route: 048
     Dates: start: 20091004
  7. ARTIST [Concomitant]
     Dosage: 1.25 MG, 2X/DAY
     Dates: start: 20091020
  8. LASIX [Concomitant]
     Dosage: 20 MG, 1X/DAY
     Dates: start: 20090119

REACTIONS (2)
  - HYPERTROPHIC CARDIOMYOPATHY [None]
  - ILEUS [None]
